FAERS Safety Report 8756730 (Version 3)
Quarter: 2013Q1

REPORT INFORMATION
  Report Type: Spontaneous
  Country: US (occurrence: US)
  Receive Date: 20120828
  Receipt Date: 20130110
  Transmission Date: 20140127
  Serious: Yes (Hospitalization)
  Sender: FDA-Public Use
  Company Number: US-INCYTE CORPORATION-2012IN001582

PATIENT
  Age: 86 None
  Sex: Female
  Weight: 54.42 kg

DRUGS (13)
  1. JAKAFI [Suspect]
     Indication: MYELOFIBROSIS
     Dosage: 20 MG, BID
     Route: 048
     Dates: start: 20120508, end: 20120806
  2. JAKAFI [Suspect]
     Indication: ANAEMIA
  3. AMLODIPINE BESYLATE [Concomitant]
  4. CALCIUM [Concomitant]
  5. ENULOSE [Concomitant]
  6. FEOSOL [Concomitant]
  7. HYDROCHLOROTHIAZIDE [Concomitant]
  8. KEPPRA [Concomitant]
  9. MIRTAZAPINE [Concomitant]
  10. VITAMIN D3 [Concomitant]
  11. VITAMIN E [Concomitant]
  12. ZINC [Concomitant]
  13. ULTRA GLA [Concomitant]

REACTIONS (8)
  - Cerebral haemorrhage [Unknown]
  - Fall [Unknown]
  - Confusional state [Recovering/Resolving]
  - Fall [Recovering/Resolving]
  - Unresponsive to stimuli [Recovering/Resolving]
  - Pancytopenia [Recovering/Resolving]
  - Convulsion [Recovering/Resolving]
  - Platelet count decreased [Recovering/Resolving]
